FAERS Safety Report 6167605-1 (Version None)
Quarter: 2009Q2

REPORT INFORMATION
  Report Type: 
  Country: None (occurrence: None)
  Receive Date: 20090424
  Receipt Date: 20090412
  Transmission Date: 20091009
  Serious: Yes (Other)
  Sender: FDA-Public Use
  Company Number: US-PFIZER INC-2009185753

PATIENT
  Sex: Male
  Weight: 61.224 kg

DRUGS (9)
  1. CHANTIX [Suspect]
     Indication: SMOKING CESSATION THERAPY
     Dosage: 1 MG, 2X/DAY
     Route: 048
     Dates: start: 20090317
  2. NICOTINE [Suspect]
  3. SEROQUEL [Concomitant]
     Indication: SCHIZOPHRENIA
     Dosage: UNK
  4. KLONOPIN [Concomitant]
     Dosage: UNK
  5. EFFEXOR [Concomitant]
     Dosage: UNK
  6. TRUVADA [Concomitant]
     Indication: HIV TEST POSITIVE
     Dosage: UNK
  7. VIRAMUNE [Concomitant]
     Dosage: UNK
  8. ZANAFLEX [Concomitant]
  9. MIRTAZAPINE [Concomitant]

REACTIONS (18)
  - AGITATION [None]
  - ANGER [None]
  - ANXIETY [None]
  - CONSTIPATION [None]
  - COUGH [None]
  - DEPRESSED MOOD [None]
  - DRUG INEFFECTIVE [None]
  - DYSGEUSIA [None]
  - FATIGUE [None]
  - FLATULENCE [None]
  - GINGIVAL PAIN [None]
  - GLOSSODYNIA [None]
  - HYPERSENSITIVITY [None]
  - MENTAL DISORDER [None]
  - NAUSEA [None]
  - SOMNOLENCE [None]
  - STRESS [None]
  - WEIGHT INCREASED [None]
